FAERS Safety Report 8657210 (Version 2)
Quarter: 2012Q4

REPORT INFORMATION
  Report Type: 
  Country: CN (occurrence: CN)
  Receive Date: 20120710
  Receipt Date: 20120906
  Transmission Date: 20130627
  Serious: Yes (Hospitalization, Other)
  Sender: FDA-Public Use
  Company Number: CN-BRISTOL-MYERS SQUIBB COMPANY-16733537

PATIENT
  Age: 43 Year
  Sex: Male

DRUGS (2)
  1. BARACLUDE [Suspect]
  2. FUZHENG HUAYU [Concomitant]
     Dosage: Capsules

REACTIONS (1)
  - Lymphoma [Unknown]
